FAERS Safety Report 24282896 (Version 1)
Quarter: 2024Q3

REPORT INFORMATION
  Report Type: Report from Study
  Country: BR (occurrence: BR)
  Receive Date: 20240904
  Receipt Date: 20240904
  Transmission Date: 20241017
  Serious: Yes (Other)
  Sender: BAYER
  Company Number: BR-BAYER-2024A125547

PATIENT
  Age: 81 Year
  Sex: Female

DRUGS (1)
  1. NEXAVAR [Suspect]
     Active Substance: SORAFENIB
     Indication: Hepatocellular carcinoma
     Dosage: 100 MG, BID
     Dates: start: 20240823

REACTIONS (6)
  - Mental impairment [Not Recovered/Not Resolved]
  - Somnolence [Unknown]
  - Apathy [Not Recovered/Not Resolved]
  - Feeling abnormal [Unknown]
  - Gait disturbance [Not Recovered/Not Resolved]
  - Off label use [None]

NARRATIVE: CASE EVENT DATE: 20240823
